FAERS Safety Report 11783088 (Version 5)
Quarter: 2016Q1

REPORT INFORMATION
  Report Type: Report from Study
  Country: HU (occurrence: HU)
  Receive Date: 20151127
  Receipt Date: 20160111
  Transmission Date: 20160525
  Serious: Yes (Hospitalization)
  Sender: FDA-Public Use
  Company Number: HU-JNJFOC-20151119044

PATIENT
  Age: 45 Year
  Sex: Female
  Weight: 54.7 kg

DRUGS (16)
  1. DROTAVERINE [Concomitant]
     Active Substance: DROTAVERINE
     Indication: CROHN^S DISEASE
     Route: 048
     Dates: start: 201303
  2. BISOPROLOL [Concomitant]
     Active Substance: BISOPROLOL
     Indication: HYPERTENSION
     Route: 048
     Dates: start: 20050301
  3. CIPROFLOXACIN. [Concomitant]
     Active Substance: CIPROFLOXACIN
     Route: 065
     Dates: start: 20151022, end: 20151111
  4. PARACETAMOL [Concomitant]
     Active Substance: ACETAMINOPHEN
     Indication: CROHN^S DISEASE
     Route: 048
     Dates: start: 201304
  5. MESALAZIN [Concomitant]
     Active Substance: MESALAMINE
     Route: 054
     Dates: start: 20130731
  6. USTEKINUMAB [Suspect]
     Active Substance: USTEKINUMAB
     Indication: CROHN^S DISEASE
     Route: 058
     Dates: start: 20130614
  7. MESALZIN [Concomitant]
     Route: 048
     Dates: start: 20000120
  8. METHYLPREDNISOLONE. [Concomitant]
     Active Substance: METHYLPREDNISOLONE
     Indication: CROHN^S DISEASE
     Route: 048
     Dates: start: 20150904
  9. CYANOCOBALAMIN W/PYRIDOXINE [Concomitant]
     Route: 048
     Dates: start: 20140919
  10. RABEPRAZOLE [Concomitant]
     Active Substance: RABEPRAZOLE
     Indication: GASTROOESOPHAGEAL REFLUX DISEASE
     Route: 048
     Dates: start: 20090610
  11. MILLIGEST [Concomitant]
     Indication: CONTRACEPTION
     Route: 048
     Dates: start: 20030401
  12. FERRIC SODIUM GLUCONATE [Concomitant]
     Indication: NUTRITIONAL SUPPLEMENTATION
     Route: 042
     Dates: start: 20120412
  13. METRONIDAZOLE. [Concomitant]
     Active Substance: METRONIDAZOLE
     Route: 048
     Dates: start: 20151022, end: 20151111
  14. USTEKINUMAB [Suspect]
     Active Substance: USTEKINUMAB
     Route: 058
  15. FOLIC ACID. [Concomitant]
     Active Substance: FOLIC ACID
     Indication: CROHN^S DISEASE
     Route: 048
     Dates: start: 20000602
  16. RIFAXIMIN [Concomitant]
     Active Substance: RIFAXIMIN
     Indication: CROHN^S DISEASE
     Route: 048
     Dates: start: 20150903, end: 20151104

REACTIONS (1)
  - Tubo-ovarian abscess [Recovered/Resolved]

NARRATIVE: CASE EVENT DATE: 20151105
